FAERS Safety Report 5576333-2 (Version None)
Quarter: 2007Q4

REPORT INFORMATION
  Report Type: 
  Country: None (occurrence: None)
  Receive Date: 20071228
  Receipt Date: 20071218
  Transmission Date: 20080405
  Serious: Yes (Disabling)
  Sender: FDA-Public Use
  Company Number: FR-ROCHE-537727

PATIENT
  Age: 71 Year
  Sex: Female

DRUGS (3)
  1. RIVOTRIL [Suspect]
     Indication: PAIN
     Route: 048
     Dates: start: 20061127
  2. PROPOFAN [Suspect]
     Indication: PAIN
     Route: 065
     Dates: start: 20031031
  3. TAHOR [Suspect]
     Route: 048
     Dates: start: 20050610, end: 20071120

REACTIONS (1)
  - MUSCLE RUPTURE [None]
